FAERS Safety Report 23098520 (Version 1)
Quarter: 2023Q4

REPORT INFORMATION
  Report Type: Spontaneous
  Country: US (occurrence: US)
  Receive Date: 20231023
  Receipt Date: 20231023
  Transmission Date: 20240110
  Serious: Yes (Other)
  Sender: FDA-Public Use
  Company Number: US-BRISTOL-MYERS SQUIBB COMPANY-2023-149979

PATIENT
  Age: 56 Year
  Sex: Female

DRUGS (1)
  1. REVLIMID [Suspect]
     Active Substance: LENALIDOMIDE
     Indication: Plasma cell myeloma
     Dosage: PATIENT RECEIVED REVLIMID THERAPY AT DOSE OF 10 MG FOR 14 DAYS ON 7 DAYS OFF QD.
     Route: 048

REACTIONS (2)
  - Thrombosis [Unknown]
  - Off label use [Unknown]

NARRATIVE: CASE EVENT DATE: 20231017
